FAERS Safety Report 7902836-9 (Version None)
Quarter: 2011Q4

REPORT INFORMATION
  Report Type: 
  Country: None (occurrence: None)
  Receive Date: 20111109
  Receipt Date: 20111028
  Transmission Date: 20120403
  Serious: Yes (Other)
  Sender: FDA-Public Use
  Company Number: CA-BRISTOL-MYERS SQUIBB COMPANY-16210981

PATIENT
  Age: 71 Year
  Sex: Female

DRUGS (11)
  1. AVAPRO [Suspect]
     Indication: HYPERTENSION
     Route: 048
     Dates: start: 20070101
  2. ACETYLSALICYLIC ACID SRT [Concomitant]
  3. AMITRIPTYLINE HCL [Concomitant]
  4. SIMVASTATIN [Concomitant]
  5. IMODIUM [Concomitant]
  6. CLONAZEPAM [Concomitant]
  7. METFORMIN HCL [Concomitant]
  8. RANITIDINE [Concomitant]
  9. GLICLAZIDE [Concomitant]
     Dosage: GLICLAZIDEMR
  10. ACETAMINOPHEN [Concomitant]
     Indication: ARTHRITIS
  11. GABAPENTIN [Concomitant]

REACTIONS (2)
  - ANGIOEDEMA [None]
  - CELLULITIS [None]
